FAERS Safety Report 8829922 (Version 2)
Quarter: 2012Q4

REPORT INFORMATION
  Report Type: 
  Country: US (occurrence: US)
  Receive Date: 20121008
  Receipt Date: 20121205
  Transmission Date: 20130627
  Serious: No
  Sender: FDA-Public Use
  Company Number: US-ASTRAZENECA-2012SE74114

PATIENT
  Age: 57 Year
  Sex: Female

DRUGS (2)
  1. NEXIUM [Suspect]
     Route: 048
  2. LOT OF MEDICATIONS [Concomitant]

REACTIONS (4)
  - Fluid retention [Unknown]
  - Weight increased [Unknown]
  - Adverse event [Unknown]
  - Rash [Unknown]
